FAERS Safety Report 25446893 (Version 1)
Quarter: 2025Q2

REPORT INFORMATION
  Report Type: Spontaneous
  Country: CN (occurrence: CN)
  Receive Date: 20250617
  Receipt Date: 20250617
  Transmission Date: 20250717
  Serious: Yes (Hospitalization)
  Sender: ROCHE
  Company Number: CN-BoehringerIngelheim-2025-BI-075272

PATIENT
  Age: 66 Year
  Sex: Male
  Weight: 66.0 kg

DRUGS (1)
  1. ALTEPLASE [Suspect]
     Active Substance: ALTEPLASE
     Indication: Thrombolysis
     Route: 042
     Dates: start: 20250604, end: 20250604

REACTIONS (3)
  - Cerebral haemorrhage [Unknown]
  - Respiratory failure [Unknown]
  - Brain herniation [Unknown]

NARRATIVE: CASE EVENT DATE: 20250604
